FAERS Safety Report 9323749 (Version 2)
Quarter: 2013Q3

REPORT INFORMATION
  Report Type: Spontaneous
  Country: FR (occurrence: FR)
  Receive Date: 20130603
  Receipt Date: 20130801
  Transmission Date: 20140515
  Serious: Yes (Other)
  Sender: FDA-Public Use
  Company Number: FR-ELI_LILLY_AND_COMPANY-FR201305008158

PATIENT
  Age: 83 Year
  Sex: Female

DRUGS (11)
  1. FORSTEO [Suspect]
     Indication: OSTEOPOROSIS
     Dosage: 20 UG, QD
     Route: 058
     Dates: start: 20130416, end: 20130528
  2. FORSTEO [Suspect]
     Indication: SPINAL FRACTURE
  3. PREVISCAN [Concomitant]
  4. LASIX [Concomitant]
  5. AMLOR [Concomitant]
  6. COVERSYL [Concomitant]
  7. CORDARONE [Concomitant]
  8. BISOPROLOL [Concomitant]
  9. DAFALGAN [Concomitant]
  10. OROCAL [Concomitant]
  11. UVEDOSE [Concomitant]

REACTIONS (2)
  - Renal failure [Unknown]
  - Creatinine renal clearance decreased [Not Recovered/Not Resolved]
